FAERS Safety Report 9482385 (Version 1)
Quarter: 2013Q3

REPORT INFORMATION
  Report Type: Spontaneous
  Country: BR (occurrence: BR)
  Receive Date: 20130828
  Receipt Date: 20130828
  Transmission Date: 20140515
  Serious: Yes (Hospitalization)
  Sender: FDA-Public Use
  Company Number: BR-PFIZER INC-2013243759

PATIENT
  Age: 49 Year
  Sex: Female

DRUGS (3)
  1. SUTENT [Suspect]
     Indication: RENAL CANCER
     Dosage: 1 CAPSULE (50 MG), 1X/DAY
     Route: 048
     Dates: start: 201302, end: 2013
  2. PURAN T4 [Concomitant]
     Dosage: UNK
  3. CAPTOPRIL [Concomitant]
     Dosage: UNK

REACTIONS (3)
  - Cardiac disorder [Unknown]
  - Hypertension [Unknown]
  - Hypothyroidism [Unknown]
